FAERS Safety Report 7211104-2 (Version None)
Quarter: 2011Q1

REPORT INFORMATION
  Report Type: 
  Country: None (occurrence: None)
  Receive Date: 20110105
  Receipt Date: 20101213
  Transmission Date: 20110831
  Serious: No
  Sender: FDA-Public Use
  Company Number: US-B.I. PHARMACEUTICALS,INC./RIDGEFIELD-2010-BP-14505BP

PATIENT
  Age: 67 Year
  Sex: Female

DRUGS (1)
  1. MIRAPEX [Suspect]
     Indication: PARKINSON'S DISEASE
     Route: 048
     Dates: start: 20020101, end: 20101101

REACTIONS (4)
  - DEPRESSION [None]
  - FATIGUE [None]
  - PATHOLOGICAL GAMBLING [None]
  - ASTHENIA [None]
